FAERS Safety Report 13129823 (Version 1)
Quarter: 2017Q1

REPORT INFORMATION
  Report Type: Spontaneous
  Country: US (occurrence: US)
  Receive Date: 20170118
  Receipt Date: 20170118
  Transmission Date: 20170428
  Serious: Yes (Hospitalization)
  Sender: FDA-Public Use
  Company Number: None

PATIENT
  Age: 46 Year
  Sex: Male

DRUGS (2)
  1. OTEZLA [Suspect]
     Active Substance: APREMILAST
     Indication: PSORIASIS
     Route: 048
  2. SAFETY CLEAN [Concomitant]

REACTIONS (3)
  - Congenital cyst [None]
  - Headache [None]
  - Condition aggravated [None]

NARRATIVE: CASE EVENT DATE: 20161229
